FAERS Safety Report 21005456 (Version 1)
Quarter: 2022Q2

REPORT INFORMATION
  Report Type: Spontaneous
  Country: US (occurrence: None)
  Receive Date: 20220624
  Receipt Date: 20220624
  Transmission Date: 20220721
  Serious: Yes (Hospitalization)
  Sender: FDA-Public Use
  Company Number: None

PATIENT
  Age: 51 Year
  Sex: Female

DRUGS (8)
  1. VALGANCICLOVIR [Suspect]
     Active Substance: VALGANCICLOVIR
     Indication: Heart transplant
     Dosage: 450 MG DAILY ORAL?
     Route: 048
     Dates: start: 20201029
  2. TACROLIMUS [Suspect]
     Active Substance: TACROLIMUS
     Indication: Heart transplant
     Dosage: 3 MG TWICE A DAY ORAL?
     Route: 048
     Dates: start: 20201029
  3. TACROLIMUS [Concomitant]
     Active Substance: TACROLIMUS
     Dates: start: 20201215
  4. PREDNISONE [Concomitant]
     Active Substance: PREDNISONE
     Dates: start: 20201029
  5. ASPIRIN [Concomitant]
     Active Substance: ASPIRIN
     Dates: start: 20201029
  6. iFerex 150 mg [Concomitant]
     Dates: start: 20211017
  7. Everolimus 0.75 mg [Concomitant]
     Dates: start: 20211028
  8. Calcium carbonate + Vit D3 500-400IU [Concomitant]
     Dates: start: 20201029

REACTIONS (1)
  - Hospitalisation [None]

NARRATIVE: CASE EVENT DATE: 20220624
